FAERS Safety Report 10670894 (Version 2)
Quarter: 2014Q4

REPORT INFORMATION
  Report Type: Report from Study
  Country: JP (occurrence: JP)
  Receive Date: 20141223
  Receipt Date: 20141223
  Transmission Date: 20150529
  Serious: Yes (Hospitalization)
  Sender: FDA-Public Use
  Company Number: JP-SHIONOGI, INC-2014000252

PATIENT
  Age: 93 Year
  Sex: Female

DRUGS (4)
  1. FINIBAX [Suspect]
     Active Substance: DORIPENEM MONOHYDRATE
     Indication: PNEUMONIA
     Dosage: 1 G, QD
     Route: 041
     Dates: start: 20140110, end: 20140110
  2. FINIBAX [Suspect]
     Active Substance: DORIPENEM MONOHYDRATE
     Dosage: 1 G, TID
     Route: 041
     Dates: start: 20140108, end: 20140109
  3. LOPEMIN                            /00384302/ [Concomitant]
     Indication: DIARRHOEA
     Dosage: 2 MG, QD
     Route: 051
     Dates: start: 20140109, end: 20140110
  4. LASIX [Concomitant]
     Active Substance: FUROSEMIDE
     Indication: PRODUCT USED FOR UNKNOWN INDICATION
     Dosage: DOSAGE FORM: UNSPECIFIED, 20MG/DAY
     Route: 065
     Dates: start: 20140109, end: 20140110

REACTIONS (2)
  - Liver disorder [Unknown]
  - Diarrhoea [Not Recovered/Not Resolved]

NARRATIVE: CASE EVENT DATE: 20140108
